FAERS Safety Report 5262126-2 (Version None)
Quarter: 2007Q1

REPORT INFORMATION
  Report Type: 
  Country: None (occurrence: None)
  Receive Date: 20070311
  Receipt Date: 20070228
  Transmission Date: 20070707
  Serious: Yes (Hospitalization)
  Sender: FDA-Public Use
  Company Number: 2006UW12078

PATIENT
  Age: 57 Year
  Sex: Female
  Weight: 104.5 kg

DRUGS (4)
  1. SEROQUEL [Suspect]
     Route: 048
  2. ZYPREXA [Suspect]
     Dates: start: 19960101, end: 20060101
  3. ABILIFY [Concomitant]
     Dates: start: 20060401, end: 20060801
  4. RISPERDAL [Concomitant]
     Dates: start: 20060801

REACTIONS (3)
  - ANKLE FRACTURE [None]
  - COLONIC OBSTRUCTION [None]
  - DIABETES MELLITUS [None]
